FAERS Safety Report 15549228 (Version 1)
Quarter: 2018Q4

REPORT INFORMATION
  Report Type: Spontaneous
  Country: US (occurrence: US)
  Receive Date: 20181025
  Receipt Date: 20181025
  Transmission Date: 20190205
  Serious: No
  Sender: FDA-Public Use
  Company Number: US-TEVA-2018-US-965770

PATIENT
  Sex: Female

DRUGS (1)
  1. ZOLPIDEM TARTRATE. [Suspect]
     Active Substance: ZOLPIDEM TARTRATE
     Dosage: FORM STRENGTH:125/5 MG
     Route: 065

REACTIONS (4)
  - Chills [Unknown]
  - Insomnia [Unknown]
  - Somnolence [Unknown]
  - Withdrawal syndrome [Unknown]
